FAERS Safety Report 9394101 (Version 1)
Quarter: 2013Q3

REPORT INFORMATION
  Report Type: Report from Study
  Country: CN (occurrence: CN)
  Receive Date: 20130710
  Receipt Date: 20130710
  Transmission Date: 20140515
  Serious: Yes (Other)
  Sender: FDA-Public Use
  Company Number: CN-BAXTER-2013BAX027223

PATIENT
  Sex: 0

DRUGS (5)
  1. QIFUMEI [Suspect]
     Indication: ANAESTHESIA
     Dosage: 2%-3% IN PURE OXYGEN - TITRATED DOSING
     Route: 055
  2. MIDAZOLAM [Suspect]
     Indication: ANAESTHESIA
     Route: 042
  3. SUFENTANIL [Suspect]
     Indication: ANAESTHESIA
     Route: 042
  4. VECURONIUM BROMIDE [Suspect]
     Indication: ANAESTHESIA
     Route: 042
  5. PROPOFOL [Suspect]
     Indication: ANAESTHESIA
     Route: 042

REACTIONS (1)
  - Dementia Alzheimer^s type [Unknown]
